FAERS Safety Report 21160841 (Version 2)
Quarter: 2022Q3

REPORT INFORMATION
  Report Type: Spontaneous
  Country: US (occurrence: US)
  Receive Date: 20220802
  Receipt Date: 20220803
  Transmission Date: 20221027
  Serious: Yes (Life-Threatening, Other)
  Sender: FDA-Public Use
  Company Number: US-drreddys-SPO/USA/22/0152845

PATIENT
  Age: 69 Year
  Sex: Female

DRUGS (26)
  1. CARVEDILOL [Interacting]
     Active Substance: CARVEDILOL
     Indication: Hypertension
     Dosage: 6.25 MG 1 TABLET IN THE MORNING AND BEDTIME
  2. HYDROXYZINE HYDROCHLORIDE [Interacting]
     Active Substance: HYDROXYZINE HYDROCHLORIDE
     Indication: Anxiety
     Dosage: AT BEDTIME
  3. PREGABALIN [Suspect]
     Active Substance: PREGABALIN
     Indication: Neuropathy peripheral
     Dosage: 150 MG 1 CAPSULE IN THE MORNING AND EVENING
  4. PREGABALIN [Suspect]
     Active Substance: PREGABALIN
     Indication: Neuralgia
  5. DULOXETINE [Interacting]
     Active Substance: DULOXETINE
     Indication: Neuropathy peripheral
     Dosage: 60 MG 1 CAPSULE IN THE MORNING
  6. DULOXETINE [Interacting]
     Active Substance: DULOXETINE
     Indication: Neuralgia
  7. GABAPENTIN [Suspect]
     Active Substance: GABAPENTIN
     Indication: Neuropathy peripheral
     Dosage: 100 MG 1 CAPSULE IN THE MORNING, EVENING AND BEDTIME
  8. GABAPENTIN [Suspect]
     Active Substance: GABAPENTIN
     Indication: Neuralgia
  9. GABAPENTIN [Interacting]
     Active Substance: GABAPENTIN
     Indication: Osteoarthritis
     Dosage: 50 MG 1 TABLET IN THE MORNING, EVENING, AND BEDTIME
  10. ATORVASTATIN [Concomitant]
     Active Substance: ATORVASTATIN
     Indication: Hyperlipidaemia
     Dosage: 40 MG 1 TABLET IN THE MORNING
  11. OMEPRAZOLE [Concomitant]
     Active Substance: OMEPRAZOLE
     Indication: Gastrooesophageal reflux disease
     Dosage: 40 MG 1 TABLET IN THE MORNING
  12. SOTALOL 120 mg [Concomitant]
     Indication: Ischaemic cardiomyopathy
     Dosage: 120 MG 1 TABLET IN THE MORNING AND EVENING
  13. ALPRAZOLAM [Concomitant]
     Active Substance: ALPRAZOLAM
     Indication: Anxiety
     Dosage: AS NEEDED
  14. LEVOTHYROXINE 25 ?g [Concomitant]
     Indication: Hypothyroidism
     Dosage: 20 MCG 1 TABLET IN THE MORNING
  15. APIXABAN [Concomitant]
     Active Substance: APIXABAN
     Indication: Product used for unknown indication
     Dosage: 5 MG 1 TABLET IN THE MORNING AND EVENING
  16. ALENDRONATE SODIUM [Concomitant]
     Active Substance: ALENDRONATE SODIUM
     Indication: Osteoporosis
     Dosage: 70 MG 1 TABLET ONCE A WEEK
  17. SALBUTAMOL 90UG [Concomitant]
     Indication: Chronic obstructive pulmonary disease
     Dosage: 90 MCG 2 PUFFS EVERY 6 H AS NEEDED
  18. DILTIAZEM 120 mg [Concomitant]
     Indication: Atrial fibrillation
     Dosage: IN THE MORNING
  19. AMITRIPTYLINE [Concomitant]
     Active Substance: AMITRIPTYLINE
     Indication: Neuropathy peripheral
     Dosage: AT BEDTIME
  20. ACETYLSALICYLIC ACID  81 mg [Concomitant]
     Indication: Product used for unknown indication
     Dosage: 81 MG 1 TABLET IN THE MORNING
  21. POTASSIUM CHLORIDE 20 mEq [Concomitant]
     Indication: Hypokalaemia
     Dosage: 20 MEQ 1 TABLET IN THE MORNING
  22. IPRATROPIUM, ALBUTEROL [Concomitant]
     Indication: Chronic obstructive pulmonary disease
     Dosage: 0.5MG/3MG 1 VIAL VIA NEBULIZER FOUR TIMES DAILY.
  23. FUROSEMIDE 80 mg - TABLET [Concomitant]
     Indication: Ischaemic cardiomyopathy
     Dosage: 80 MG 1 TABLET ONCE DAILY
  24. TIOTROPIUM 1.25ug [Concomitant]
     Indication: Chronic obstructive pulmonary disease
     Dosage: 1.25 MCG 2 PUFFS ONCE DAILY
  25. PHENYTOIN 100 mg - TABLET [Concomitant]
     Indication: Epilepsy
     Dosage: 100 MG 1 TABLET IN THE MORNING AND BEDTIME
  26. GLYCERYL TRINITRATE 0.4mg Tablet [Concomitant]
     Indication: Ischaemic cardiomyopathy
     Dosage: 0.4 MG 1 TABLET EVERY 5 MIN AS NEEDED

REACTIONS (4)
  - Drug ineffective [Unknown]
  - Drug-genetic interaction [Recovered/Resolved]
  - Inadequate analgesia [Recovering/Resolving]
  - Drug interaction [Recovered/Resolved]
